FAERS Safety Report 18738971 (Version 1)
Quarter: 2021Q1

REPORT INFORMATION
  Report Type: Spontaneous
  Country: US (occurrence: US)
  Receive Date: 20210108
  Receipt Date: 20210108
  Transmission Date: 20210419
  Serious: Yes (Hospitalization)
  Sender: FDA-Public Use
  Company Number: None

PATIENT
  Age: 53 Year
  Sex: Male
  Weight: 99 kg

DRUGS (1)
  1. CINACALCET (CINACALCET HCL 30MG TAB) [Suspect]
     Active Substance: CINACALCET HYDROCHLORIDE
     Indication: NEPHROPATHY
     Route: 048
     Dates: start: 20200609, end: 20200711

REACTIONS (5)
  - Respiratory distress [None]
  - Acute respiratory failure [None]
  - Drug hypersensitivity [None]
  - Dyspnoea [None]
  - Cough [None]

NARRATIVE: CASE EVENT DATE: 20200702
